FAERS Safety Report 5302086-9 (Version None)
Quarter: 2007Q2

REPORT INFORMATION
  Report Type: 
  Country: None (occurrence: None)
  Receive Date: 20070419
  Receipt Date: 20070412
  Transmission Date: 20071010
  Serious: Yes (Disabling)
  Sender: FDA-Public Use
  Company Number: FR-GLAXOSMITHKLINE-B0454481A

PATIENT
  Age: 4 Year
  Sex: Female
  Weight: 21.6 kg

DRUGS (2)
  1. COMBIVIR [Suspect]
     Indication: ANTIVIRAL PROPHYLAXIS
     Dates: start: 20020712, end: 20021001
  2. RETROVIR [Suspect]
     Indication: ANTIVIRAL PROPHYLAXIS
     Dosage: .75ML FOUR TIMES PER DAY
     Route: 048
     Dates: start: 20021012, end: 20021126

REACTIONS (15)
  - ABDOMINAL PAIN [None]
  - ACUTE LYMPHOCYTIC LEUKAEMIA [None]
  - ASTHENIA [None]
  - BLOOD FIBRINOGEN INCREASED [None]
  - BLOOD SODIUM DECREASED [None]
  - C-REACTIVE PROTEIN INCREASED [None]
  - DIARRHOEA [None]
  - DRUG EXPOSURE DURING PREGNANCY [None]
  - ECCHYMOSIS [None]
  - HAEMOGLOBIN DECREASED [None]
  - PALLOR [None]
  - PYREXIA [None]
  - TACHYCARDIA [None]
  - VOMITING [None]
  - WHITE BLOOD CELL COUNT DECREASED [None]
